FAERS Safety Report 24545603 (Version 2)
Quarter: 2024Q4

REPORT INFORMATION
  Report Type: Spontaneous
  Country: US (occurrence: US)
  Receive Date: 20241024
  Receipt Date: 20241028
  Transmission Date: 20250115
  Serious: No
  Sender: PFIZER
  Company Number: US-PFIZER INC-PV202400137587

PATIENT
  Age: 43 Year
  Sex: Male

DRUGS (1)
  1. NURTEC ODT [Suspect]
     Active Substance: RIMEGEPANT SULFATE
     Indication: Headache
     Dosage: TAKE ONE TABLET DAILY AS NEEDED. NO MORE THAN ONE DOSE IN 24 HRS.
     Route: 048

REACTIONS (1)
  - Off label use [Unknown]
